FAERS Safety Report 19207072 (Version 2)
Quarter: 2021Q2

REPORT INFORMATION
  Report Type: Spontaneous
  Country: CN (occurrence: CN)
  Receive Date: 20210430
  Receipt Date: 20210519
  Transmission Date: 20210717
  Serious: Yes (Hospitalization)
  Sender: FDA-Public Use
  Company Number: CN-ASTRAZENECA-2021A337229

PATIENT
  Sex: Female
  Weight: 60 kg

DRUGS (7)
  1. VENTOLIN [Concomitant]
     Active Substance: ALBUTEROL SULFATE
  2. MEDROL [Concomitant]
     Active Substance: METHYLPREDNISOLONE
  3. AZITHROMYCIN ANHYDROUS. [Concomitant]
     Active Substance: AZITHROMYCIN ANHYDROUS
  4. METHYLPREDNISOLONE. [Concomitant]
     Active Substance: METHYLPREDNISOLONE
  5. SYMBICORT [Suspect]
     Active Substance: BUDESONIDE\FORMOTEROL FUMARATE DIHYDRATE
     Indication: ASTHMA
     Dosage: 320UG/9UG/INHALATION, 60 INHALATIONS, INHALED, UNKNOWN, ONCE IN THE MORNING AND ONCE IN THE EVENING
     Route: 055
     Dates: start: 201811
  6. LEVOFLOXACIN. [Concomitant]
     Active Substance: LEVOFLOXACIN
  7. SYMBICORT [Suspect]
     Active Substance: BUDESONIDE\FORMOTEROL FUMARATE DIHYDRATE
     Indication: ASTHMA
     Dosage: 320UG/9UG/INHALATION, 60 INHALATIONS, INHALED, UNKNOWN, ONCE IN THE MORNING AND ONCE IN THE EVENING
     Route: 055
     Dates: start: 201811

REACTIONS (6)
  - Arthralgia [Unknown]
  - Asthma [Recovering/Resolving]
  - Lung disorder [Recovering/Resolving]
  - Osteonecrosis [Unknown]
  - Dyspnoea [Recovering/Resolving]
  - Gait disturbance [Recovering/Resolving]
